FAERS Safety Report 4843830-4 (Version None)
Quarter: 2005Q4

REPORT INFORMATION
  Report Type: 
  Country: None (occurrence: None)
  Receive Date: 20051202
  Receipt Date: 20051122
  Transmission Date: 20060501
  Serious: Yes (Hospitalization)
  Sender: FDA-Public Use
  Company Number: FR-GLAXOSMITHKLINE-B0401742A

PATIENT
  Age: 82 Year
  Sex: Female
  Weight: 44 kg

DRUGS (6)
  1. DEROXAT [Suspect]
     Dosage: 20MG PER DAY
     Route: 048
  2. MODOPAR [Suspect]
     Dosage: 375MG PER DAY
     Route: 048
  3. OFLOCET [Suspect]
     Dosage: 400MG PER DAY
     Route: 048
     Dates: end: 20050930
  4. TAREG [Suspect]
     Dosage: 40MG PER DAY
     Route: 048
  5. PREVISCAN [Suspect]
     Dosage: 10MG PER DAY
     Route: 048
     Dates: end: 20050921
  6. CORDARONE [Suspect]
     Route: 048

REACTIONS (6)
  - ASTHENIA [None]
  - DIZZINESS [None]
  - NORMOCHROMIC NORMOCYTIC ANAEMIA [None]
  - ORTHOSTATIC HYPOTENSION [None]
  - PALLOR [None]
  - SERUM FERRITIN INCREASED [None]
